FAERS Safety Report 6193481-7 (Version None)
Quarter: 2009Q2

REPORT INFORMATION
  Report Type: 
  Country: None (occurrence: None)
  Receive Date: 20090518
  Receipt Date: 20090506
  Transmission Date: 20091009
  Serious: Yes (Hospitalization, Other)
  Sender: FDA-Public Use
  Company Number: US-BIOGENIDEC-2009BI001622

PATIENT
  Age: 37 Year
  Sex: Female
  Weight: 79 kg

DRUGS (1)
  1. TYSABRI [Suspect]
     Indication: MULTIPLE SCLEROSIS
     Route: 042
     Dates: start: 20080820

REACTIONS (6)
  - BLISTER INFECTED [None]
  - BRONCHITIS [None]
  - CELLULITIS [None]
  - DRUG ERUPTION [None]
  - HERPES ZOSTER [None]
  - STRESS [None]
